FAERS Safety Report 4969230-4 (Version None)
Quarter: 2006Q2

REPORT INFORMATION
  Report Type: 
  Country: None (occurrence: None)
  Receive Date: 20060405
  Receipt Date: 20060324
  Transmission Date: 20061013
  Serious: Yes (Other)
  Sender: FDA-Public Use
  Company Number: 2006041888

PATIENT
  Sex: Male
  Weight: 93.8946 kg

DRUGS (8)
  1. LIPITOR [Suspect]
     Indication: BLOOD CHOLESTEROL
     Dosage: 19 MG (10 MG, 1 IN 1 D)
  2. CARDURA [Suspect]
     Indication: BENIGN PROSTATIC HYPERPLASIA
  3. GLUCOSAMINE (GLUCOSAMINE) [Concomitant]
  4. CHONDROITIN (CHONDROITIN SULFATE) [Concomitant]
  5. PSYLLIUM (PSYLLIUM) [Concomitant]
  6. VITAMIN E [Concomitant]
  7. LECITHIN (LECITHIN) [Concomitant]
  8. TYLENOL [Concomitant]

REACTIONS (3)
  - ASTHENIA [None]
  - BENIGN PROSTATIC HYPERPLASIA [None]
  - MYALGIA [None]
